FAERS Safety Report 8627450 (Version 3)
Quarter: 2012Q4

REPORT INFORMATION
  Report Type: 
  Country: GB (occurrence: GB)
  Receive Date: 20120621
  Receipt Date: 20121120
  Transmission Date: 20130627
  Serious: Yes (Death, Hospitalization)
  Sender: FDA-Public Use
  Company Number: GB-JNJFOC-20120607369

PATIENT
  Sex: Female
  Weight: 30 kg

DRUGS (8)
  1. CONCERTA XL [Suspect]
     Indication: ATTENTION DEFICIT/HYPERACTIVITY DISORDER
     Route: 048
     Dates: start: 20110830, end: 20111026
  2. CONCERTA XL [Suspect]
     Indication: ATTENTION DEFICIT/HYPERACTIVITY DISORDER
     Route: 048
     Dates: start: 20100910
  3. MELATONIN [Concomitant]
     Indication: POOR QUALITY SLEEP
     Route: 048
     Dates: start: 20100910
  4. MELATONIN [Concomitant]
     Indication: POOR QUALITY SLEEP
     Route: 048
     Dates: start: 2010, end: 20111026
  5. METHYLPHENIDATE [Concomitant]
     Indication: PRODUCT USED FOR UNKNOWN INDICATION
     Route: 048
     Dates: start: 20100324, end: 20100602
  6. METHYLPHENIDATE [Concomitant]
     Indication: PRODUCT USED FOR UNKNOWN INDICATION
     Route: 048
     Dates: start: 20101207, end: 20111126
  7. METHYLPHENIDATE [Concomitant]
     Indication: PRODUCT USED FOR UNKNOWN INDICATION
     Route: 048
     Dates: start: 20100602, end: 20100910
  8. METHYLPHENIDATE [Concomitant]
     Indication: PRODUCT USED FOR UNKNOWN INDICATION
     Route: 048
     Dates: start: 20100302, end: 20100324

REACTIONS (1)
  - Completed suicide [Fatal]
